FAERS Safety Report 7529969-3 (Version None)
Quarter: 2011Q2

REPORT INFORMATION
  Report Type: 
  Country: None (occurrence: None)
  Receive Date: 20110607
  Receipt Date: 20110602
  Transmission Date: 20111010
  Serious: Yes (Hospitalization)
  Sender: FDA-Public Use
  Company Number: GB-MERCK-1105GBR00065

PATIENT
  Age: 74 Year
  Sex: Female

DRUGS (4)
  1. ZOCOR [Suspect]
     Indication: HYPERTENSION
     Route: 048
  2. ZOCOR [Suspect]
     Route: 048
  3. ZOCOR [Suspect]
     Indication: BLOOD CHOLESTEROL INCREASED
     Route: 048
  4. ZOCOR [Suspect]
     Route: 048

REACTIONS (2)
  - RHABDOMYOLYSIS [None]
  - SICK SINUS SYNDROME [None]
